FAERS Safety Report 10016474 (Version 5)
Quarter: 2014Q3

REPORT INFORMATION
  Report Type: Report from Study
  Country: TR (occurrence: TR)
  Receive Date: 20140317
  Receipt Date: 20140828
  Transmission Date: 20150326
  Serious: Yes (Hospitalization)
  Sender: FDA-Public Use
  Company Number: TR-US-EMD SERONO, INC.-7274958

PATIENT
  Sex: Male

DRUGS (9)
  1. PHENPROBAMATE [Concomitant]
     Active Substance: PHENPROBAMATE
     Indication: ANALGESIC THERAPY
  2. PHENPROBAMATE [Concomitant]
     Active Substance: PHENPROBAMATE
  3. TOLTERODINE [Concomitant]
     Active Substance: TOLTERODINE
     Indication: URINARY INCONTINENCE
  4. VITAMIN B12 [Concomitant]
     Active Substance: CYANOCOBALAMIN
     Indication: VITAMIN B12 DEFICIENCY
  5. DOLOREX                            /00068902/ [Concomitant]
     Active Substance: UNSPECIFIED INGREDIENT
     Indication: MUSCLE RELAXANT THERAPY
  6. LIORESAL [Concomitant]
     Active Substance: BACLOFEN
     Indication: MUSCLE RELAXANT THERAPY
  7. NOOTROPIL [Concomitant]
     Active Substance: PIRACETAM
     Indication: BALANCE DISORDER
  8. LANSOR [Concomitant]
     Active Substance: LANSOPRAZOLE
     Indication: GASTRIC DISORDER
  9. REBIF [Suspect]
     Active Substance: INTERFERON BETA-1A
     Indication: MULTIPLE SCLEROSIS
     Dates: start: 20030422

REACTIONS (3)
  - Lung neoplasm malignant [Not Recovered/Not Resolved]
  - Constipation [Not Recovered/Not Resolved]
  - Weight decreased [Not Recovered/Not Resolved]

NARRATIVE: CASE EVENT DATE: 2007
